FAERS Safety Report 18721970 (Version 1)
Quarter: 2021Q1

REPORT INFORMATION
  Report Type: Spontaneous
  Country: US (occurrence: US)
  Receive Date: 20210111
  Receipt Date: 20210111
  Transmission Date: 20210419
  Serious: Yes (Other)
  Sender: FDA-Public Use
  Company Number: US-AUROBINDO-AUR-APL-2021-000131

PATIENT
  Age: 52 Year
  Sex: Female

DRUGS (1)
  1. LISINOPRIL. [Suspect]
     Active Substance: LISINOPRIL
     Indication: PROTEINURIA
     Dosage: 10 MILLIGRAM
     Route: 065

REACTIONS (2)
  - Focal segmental glomerulosclerosis [Recovered/Resolved]
  - Condition aggravated [Recovered/Resolved]
